FAERS Safety Report 25451733 (Version 2)
Quarter: 2025Q2

REPORT INFORMATION
  Report Type: Spontaneous
  Country: FR (occurrence: FR)
  Receive Date: 20250618
  Receipt Date: 20250630
  Transmission Date: 20250717
  Serious: Yes (Hospitalization)
  Sender: MERZ
  Company Number: None

PATIENT

DRUGS (7)
  1. XEOMIN [Suspect]
     Active Substance: INCOBOTULINUMTOXINA
     Indication: Salivary hypersecretion
     Dosage: 190 INTERNATIONAL UNIT
     Dates: start: 20250606, end: 20250606
  2. XEOMIN [Suspect]
     Active Substance: INCOBOTULINUMTOXINA
     Indication: Muscle spasticity
  3. BOTOX [Concomitant]
     Active Substance: ONABOTULINUMTOXINA
     Indication: Product used for unknown indication
     Dosage: 150 INTERNATIONAL UNIT
     Route: 030
     Dates: start: 20240828, end: 20240828
  4. BOTOX [Concomitant]
     Active Substance: ONABOTULINUMTOXINA
     Indication: Product used for unknown indication
     Dosage: 150 INTERNATIONAL UNIT
     Dates: start: 20240828, end: 20240828
  5. BOTOX [Concomitant]
     Active Substance: ONABOTULINUMTOXINA
     Indication: Neuromuscular blocking therapy
  6. DOLIPRANE [Concomitant]
     Active Substance: ACETAMINOPHEN
  7. ATARAX [Concomitant]
     Active Substance: HYDROXYZINE HYDROCHLORIDE
     Indication: Premedication
     Dosage: 12 MILLIGRAM
     Dates: start: 202506

REACTIONS (4)
  - Hospitalisation [Unknown]
  - Product preparation issue [Unknown]
  - Overdose [Unknown]
  - Product use in unapproved indication [Unknown]

NARRATIVE: CASE EVENT DATE: 20250606
